FAERS Safety Report 25680085 (Version 1)
Quarter: 2025Q3

REPORT INFORMATION
  Report Type: Spontaneous
  Country: IN (occurrence: IN)
  Receive Date: 20250814
  Receipt Date: 20250814
  Transmission Date: 20251020
  Serious: Yes (Hospitalization, Other)
  Sender: Unknown Manufacturer
  Company Number: IN-862174955-ML2025-04069

PATIENT
  Age: 42 Year
  Sex: Female

DRUGS (1)
  1. TRANEXAMIC ACID [Suspect]
     Active Substance: TRANEXAMIC ACID
     Indication: Haemorrhage prophylaxis
     Dosage: ON 6/4/25 INJ. TRANEXAMIC ACID 1 GRAM IV STAT WAS GIVEN DURING SURGERY AND WAS CONTINUED IN THE DOSE
     Route: 042

REACTIONS (5)
  - Hallucination, visual [Recovered/Resolved]
  - Hallucination, auditory [Recovered/Resolved]
  - Delirium [Recovering/Resolving]
  - Agitation [Recovered/Resolved]
  - Seizure [Recovering/Resolving]

NARRATIVE: CASE EVENT DATE: 20250407
